FAERS Safety Report 5931598-X (Version None)
Quarter: 2008Q4

REPORT INFORMATION
  Report Type: 
  Country: None (occurrence: None)
  Receive Date: 20081009
  Receipt Date: 20080422
  Transmission Date: 20090506
  Serious: Yes (Other)
  Sender: FDA-Public Use
  Company Number: PHEH2008US03435

PATIENT
  Age: 64 Year
  Sex: Male

DRUGS (10)
  1. ZOMETA [Suspect]
     Indication: METASTASES TO BONE
     Dosage: 4MG MONTHLY INTRAVENOUS
     Route: 042
     Dates: start: 20050831, end: 20071218
  2. LUPRON II (LEUPRORELIN ACETATE) [Concomitant]
  3. ANTIDIABETICS (NO INGREDIENTS/SUBSTANCES) [Concomitant]
  4. FLOMAX [Concomitant]
  5. LISINOPRIL [Concomitant]
  6. MEGACE [Concomitant]
  7. DOSS (DANTRON, DOCUSATE SODIUM) [Concomitant]
  8. GABAPENTIN [Concomitant]
  9. MORPHINE [Concomitant]
  10. ACTOPLUS MET (METFORMIN HYDROCHLORIDE, PIOGLITAZONE HYDROCHLORIDE) [Concomitant]

REACTIONS (26)
  - ALVEOLAR OSTEITIS [None]
  - ASTHMA [None]
  - BACK PAIN [None]
  - BONE DISORDER [None]
  - CHEST PAIN [None]
  - DENTAL CARE [None]
  - DENTAL CARIES [None]
  - DYSPNOEA [None]
  - EDENTULOUS [None]
  - ERYTHEMA [None]
  - FATIGUE [None]
  - FEELING OF BODY TEMPERATURE CHANGE [None]
  - IMPAIRED HEALING [None]
  - LOOSE TOOTH [None]
  - MASTICATION DISORDER [None]
  - ORAL DISORDER [None]
  - OSTEONECROSIS [None]
  - PAIN IN JAW [None]
  - PERIODONTITIS [None]
  - POOR PERSONAL HYGIENE [None]
  - RADIOTHERAPY [None]
  - SPINAL COLUMN STENOSIS [None]
  - SWELLING [None]
  - TOOTH DISORDER [None]
  - TOOTH EXTRACTION [None]
  - TOOTHACHE [None]
